FAERS Safety Report 8015195 (Version 6)
Quarter: 2015Q1

REPORT INFORMATION
  Report Type: Report from Study
  Country: JP (occurrence: JP)
  Receive Date: 20110629
  Receipt Date: 20150317
  Transmission Date: 20150721
  Serious: Yes (Death, Hospitalization)
  Sender: FDA-Public Use
  Company Number: JP-PFIZER INC-2011141735

PATIENT
  Age: 62 Year
  Sex: Male
  Weight: 66.7 kg

DRUGS (2)
  1. TEMSIROLIMUS [Suspect]
     Active Substance: TEMSIROLIMUS
     Indication: RENAL CELL CARCINOMA
     Dosage: 25 MG, UNK
     Route: 042
     Dates: start: 20110621, end: 20110621
  2. POLARAMINE [Concomitant]
     Active Substance: DEXCHLORPHENIRAMINE MALEATE
     Dosage: 5 MG, 1X/DAY
     Route: 042

REACTIONS (3)
  - Pharyngeal oedema [Recovering/Resolving]
  - Death [Fatal]
  - Oropharyngeal pain [Recovering/Resolving]

NARRATIVE: CASE EVENT DATE: 20110622
